FAERS Safety Report 4983114-7 (Version None)
Quarter: 2006Q2

REPORT INFORMATION
  Report Type: 
  Country: None (occurrence: None)
  Receive Date: 20060426
  Receipt Date: 20060419
  Transmission Date: 20061013
  Serious: Yes (Death, Other)
  Sender: FDA-Public Use
  Company Number: PHBS2006GB05803

PATIENT
  Age: 76 Year
  Sex: Female

DRUGS (6)
  1. CYCLOSPORINE [Suspect]
     Indication: PUSTULAR PSORIASIS
  2. METHOTREXATE [Suspect]
     Indication: PUSTULAR PSORIASIS
     Route: 048
  3. AZATHIOPRINE [Suspect]
     Indication: COLITIS ULCERATIVE
  4. REMICADE [Suspect]
     Indication: PUSTULAR PSORIASIS
  5. ACITRETIN [Concomitant]
  6. HYDROXYUREA [Concomitant]

REACTIONS (4)
  - COLITIS ULCERATIVE [None]
  - PNEUMONITIS [None]
  - RENAL IMPAIRMENT [None]
  - T-CELL LYMPHOMA [None]
